FAERS Safety Report 9613742 (Version 3)
Quarter: 2015Q1

REPORT INFORMATION
  Report Type: Report from Study
  Country: NL (occurrence: NL)
  Receive Date: 20131010
  Receipt Date: 20150223
  Transmission Date: 20150721
  Serious: Yes (Hospitalization, Other)
  Sender: FDA-Public Use
  Company Number: NL-ROCHE-1286063

PATIENT

DRUGS (3)
  1. PEG-INTERFERON ALFA 2A [Suspect]
     Active Substance: PEGINTERFERON ALFA-2A
     Indication: CHRONIC HEPATITIS C
     Route: 065
  2. PEG-INTERFERON ALFA 2A [Suspect]
     Active Substance: PEGINTERFERON ALFA-2A
     Indication: HEPATIC FIBROSIS
  3. RIBAVIRIN. [Suspect]
     Active Substance: RIBAVIRIN
     Indication: CHRONIC HEPATITIS C
     Route: 065

REACTIONS (19)
  - Atrial fibrillation [Unknown]
  - Pulmonary haemorrhage [Unknown]
  - Renal impairment [Unknown]
  - Thrombocytopenia [Unknown]
  - Haematuria [Unknown]
  - Rectal haemorrhage [Unknown]
  - Haematotoxicity [Unknown]
  - Epistaxis [Unknown]
  - Vaginal haemorrhage [Unknown]
  - Ovarian cyst ruptured [Unknown]
  - Abdominal pain [Unknown]
  - Skin haemorrhage [Unknown]
  - Pleural effusion [Unknown]
  - Gingival bleeding [Unknown]
  - Conjunctival haemorrhage [Unknown]
  - Cerebrovascular accident [Unknown]
  - Cardiac failure [Unknown]
  - Anaemia [Unknown]
  - Chest pain [Unknown]
